FAERS Safety Report 4790350-1 (Version None)
Quarter: 2005Q4

REPORT INFORMATION
  Report Type: 
  Country: None (occurrence: None)
  Receive Date: 20051005
  Receipt Date: 20051005
  Transmission Date: 20060501
  Serious: Yes (Life-Threatening)
  Sender: FDA-Public Use
  Company Number: None

PATIENT
  Age: 47 Year
  Sex: Female

DRUGS (2)
  1. LANTUS [Suspect]
     Indication: DIABETES MELLITUS INSULIN-DEPENDENT
     Dosage: 8 UNITS QHS
  2. REGULAR INSULIN [Suspect]
     Dosage: 8-6-4 Q TID AC

REACTIONS (1)
  - BLOOD GLUCOSE INCREASED [None]
